FAERS Safety Report 15813276 (Version 6)
Quarter: 2019Q3

REPORT INFORMATION
  Report Type: Report from Study
  Country: DE (occurrence: DE)
  Receive Date: 20190111
  Receipt Date: 20190920
  Transmission Date: 20191004
  Serious: Yes (Death, Hospitalization, Other)
  Sender: FDA-Public Use
  Company Number: DE-BRISTOL-MYERS SQUIBB COMPANY-BMS-2018-113384

PATIENT
  Age: 64 Year
  Sex: Female

DRUGS (10)
  1. ONDANSETRON [Concomitant]
     Active Substance: ONDANSETRON
     Indication: PRODUCT USED FOR UNKNOWN INDICATION
     Dosage: 16 MG, PRN
     Route: 065
  2. METAMIZOL                          /06276701/ [Concomitant]
     Active Substance: METAMIZOLE
     Indication: PRODUCT USED FOR UNKNOWN INDICATION
     Dosage: 3000 MG, PRN
     Route: 065
     Dates: start: 20181010
  3. OPIPRAMOL [Concomitant]
     Active Substance: OPIPRAMOL
     Indication: PRODUCT USED FOR UNKNOWN INDICATION
     Dosage: 100 MG, UNK
     Route: 065
     Dates: start: 20181004
  4. L-THYROXIN                         /00068001/ [Concomitant]
     Active Substance: LEVOTHYROXINE
     Indication: PRODUCT USED FOR UNKNOWN INDICATION
     Dosage: 100 ?G, UNK
     Route: 065
  5. NIVOLUMAB [Suspect]
     Active Substance: NIVOLUMAB
     Indication: NON-SMALL CELL LUNG CANCER
     Dosage: 3 MG/KG, Q2WK
     Route: 042
     Dates: start: 20181010, end: 20190301
  6. SALBUTAMOL [Concomitant]
     Active Substance: ALBUTEROL
     Indication: PRODUCT USED FOR UNKNOWN INDICATION
     Dosage: 1 DF, PRN
     Route: 065
  7. PANTOPRAZOLE [Concomitant]
     Active Substance: PANTOPRAZOLE
     Indication: PRODUCT USED FOR UNKNOWN INDICATION
     Dosage: 20 MG, UNK
     Route: 065
  8. ACETYLCYSTEINE. [Concomitant]
     Active Substance: ACETYLCYSTEINE
     Indication: PRODUCT USED FOR UNKNOWN INDICATION
     Dosage: 600 MG, UNK
     Route: 065
  9. INDACATEROL [Concomitant]
     Active Substance: INDACATEROL
     Indication: PRODUCT USED FOR UNKNOWN INDICATION
     Dosage: 1 DF, UNK
     Route: 065
  10. CALCIUM [Concomitant]
     Active Substance: CALCIUM
     Indication: PRODUCT USED FOR UNKNOWN INDICATION
     Dosage: 1000 MG, UNK
     Route: 065

REACTIONS (4)
  - Non-small cell lung cancer [Fatal]
  - Chronic obstructive pulmonary disease [Recovered/Resolved]
  - Panic attack [Recovered/Resolved]
  - Pneumothorax [Recovered/Resolved]

NARRATIVE: CASE EVENT DATE: 20181018
